FAERS Safety Report 18334712 (Version 1)
Quarter: 2020Q4

REPORT INFORMATION
  Report Type: Other
  Country: CA (occurrence: CA)
  Receive Date: 20201001
  Receipt Date: 20201001
  Transmission Date: 20210113
  Serious: Yes (Other)
  Sender: FDA-Public Use
  Company Number: CA-APOTEX-2020AP018738

PATIENT
  Age: 15 Year
  Sex: Male

DRUGS (2)
  1. APO-ARIPIPRAZOLE [Suspect]
     Active Substance: ARIPIPRAZOLE
     Indication: AGGRESSION
  2. APO-ARIPIPRAZOLE [Suspect]
     Active Substance: ARIPIPRAZOLE
     Indication: ANGER
     Dosage: 10 MILLIGRAM, BID
     Route: 048

REACTIONS (4)
  - Suicidal ideation [Recovering/Resolving]
  - Dysgeusia [Recovering/Resolving]
  - Product substitution issue [Recovering/Resolving]
  - Aggression [Recovering/Resolving]
